FAERS Safety Report 6360597-1 (Version None)
Quarter: 2009Q3

REPORT INFORMATION
  Report Type: 
  Country: None (occurrence: None)
  Receive Date: 20090915
  Receipt Date: 20090909
  Transmission Date: 20100115
  Serious: Yes (Life-Threatening, Hospitalization)
  Sender: FDA-Public Use
  Company Number: 233283K09USA

PATIENT
  Age: 63 Year
  Sex: Male

DRUGS (7)
  1. REBIF [Suspect]
     Indication: MULTIPLE SCLEROSIS
     Dosage: 8.8 MCG, 3 IN 1 WEEKS, SUBCUTANEOUS, 8.8 MCG
     Route: 058
     Dates: start: 20090323, end: 20090323
  2. REBIF [Suspect]
     Indication: MULTIPLE SCLEROSIS
     Dosage: 8.8 MCG, 3 IN 1 WEEKS, SUBCUTANEOUS, 8.8 MCG
     Route: 058
     Dates: start: 20090413
  3. PLAVIX [Concomitant]
  4. ZOCOR [Concomitant]
  5. TYLENOL [Concomitant]
  6. LEXAPRO [Concomitant]
  7. AGUMENTIN (AGUMENTIN) [Concomitant]

REACTIONS (17)
  - AGITATION [None]
  - ALCOHOLIC [None]
  - BLOOD GLUCOSE INCREASED [None]
  - BLOOD POTASSIUM INCREASED [None]
  - CLOSTRIDIAL INFECTION [None]
  - DELUSION [None]
  - DISORIENTATION [None]
  - DYSPHAGIA [None]
  - ELECTROLYTE IMBALANCE [None]
  - EPISTAXIS [None]
  - ERYTHEMA [None]
  - FEELING ABNORMAL [None]
  - FLUID RETENTION [None]
  - HEART RATE IRREGULAR [None]
  - MULTIPLE SCLEROSIS RELAPSE [None]
  - PLATELET COUNT DECREASED [None]
  - PNEUMONIA [None]
